FAERS Safety Report 19798773 (Version 3)
Quarter: 2021Q4

REPORT INFORMATION
  Report Type: Report from Study
  Country: CO (occurrence: CO)
  Receive Date: 20210907
  Receipt Date: 20211020
  Transmission Date: 20220304
  Serious: Yes (Other)
  Sender: FDA-Public Use
  Company Number: CO-002147023-NVSC2021CO195341

PATIENT

DRUGS (4)
  1. RUXOLITINIB [Suspect]
     Active Substance: RUXOLITINIB
     Indication: Polycythaemia vera
     Dosage: 20 MG, Q12H
     Route: 048
  2. RUXOLITINIB [Suspect]
     Active Substance: RUXOLITINIB
     Dosage: 10 MG, Q12H
     Route: 048
  3. METHOTREXATE [Concomitant]
     Active Substance: METHOTREXATE
     Indication: Product used for unknown indication
     Dosage: UNK, QD (STARTED 18 YEAR AGO)
     Route: 048
  4. FOLIC ACID [Concomitant]
     Active Substance: FOLIC ACID
     Indication: Product used for unknown indication
     Dosage: UNK, QD (STARTED 18 YEAR AGO)
     Route: 048

REACTIONS (5)
  - Vision blurred [Unknown]
  - Haemoglobin decreased [Recovered/Resolved]
  - Systemic lupus erythematosus [Unknown]
  - Optic ischaemic neuropathy [Unknown]
  - Thrombosis [Unknown]
